FAERS Safety Report 24411199 (Version 1)
Quarter: 2024Q4

REPORT INFORMATION
  Report Type: Spontaneous
  Country: US (occurrence: US)
  Receive Date: 20241008
  Receipt Date: 20241008
  Transmission Date: 20250115
  Serious: No
  Sender: FERRING
  Company Number: US-FERRINGPH-2024FE04985

PATIENT
  Age: 40 Year
  Sex: Male

DRUGS (1)
  1. ADSTILADRIN [Suspect]
     Active Substance: NADOFARAGENE FIRADENOVEC-VNCG
     Indication: Product used for unknown indication
     Dosage: 240 MG, ONCE/SINGLE
     Route: 065
     Dates: start: 20240830, end: 20240830

REACTIONS (3)
  - Micturition urgency [Recovered/Resolved]
  - Bladder spasm [Recovered/Resolved]
  - Instillation site discharge [Recovered/Resolved]

NARRATIVE: CASE EVENT DATE: 20240830
